FAERS Safety Report 8181661-0 (Version None)
Quarter: 2012Q1

REPORT INFORMATION
  Report Type: 
  Country: None (occurrence: None)
  Receive Date: 20120301
  Receipt Date: 20120301
  Transmission Date: 20120608
  Serious: Yes (Other)
  Sender: FDA-Public Use
  Company Number: None

PATIENT
  Age: 70 Year
  Sex: Female
  Weight: 65.7716 kg

DRUGS (1)
  1. PROLIA [Suspect]
     Dosage: 1 POLIA SHOT  1 INJECTION
     Dates: start: 20110919

REACTIONS (5)
  - MYALGIA [None]
  - CYSTITIS [None]
  - ABDOMINAL PAIN UPPER [None]
  - HEADACHE [None]
  - CHEST PAIN [None]
